FAERS Safety Report 9265329 (Version 2)
Quarter: 2013Q3

REPORT INFORMATION
  Report Type: Spontaneous
  Country: FR (occurrence: FR)
  Receive Date: 20130501
  Receipt Date: 20130711
  Transmission Date: 20140515
  Serious: Yes (Hospitalization)
  Sender: FDA-Public Use
  Company Number: FR-ASTRAZENECA-2013SE28037

PATIENT
  Age: 5957 Day
  Sex: Female

DRUGS (9)
  1. XYLOCAINE [Suspect]
     Indication: GENERAL ANAESTHESIA
     Route: 042
     Dates: start: 20130124, end: 20130124
  2. DIPRIVAN [Suspect]
     Indication: GENERAL ANAESTHESIA
     Route: 042
     Dates: start: 20130124, end: 20130124
  3. PERFALGAN [Suspect]
     Indication: PAIN
     Route: 042
     Dates: start: 20130124, end: 20130124
  4. TRACRIUM [Suspect]
     Indication: GENERAL ANAESTHESIA
     Route: 042
     Dates: start: 20130124, end: 20130124
  5. DEXAMETHASONE MYLAN [Suspect]
     Route: 042
     Dates: start: 20130124, end: 20130124
  6. KETAMINE PANPHARMA [Suspect]
     Indication: GENERAL ANAESTHESIA
     Route: 042
     Dates: start: 20130124, end: 20130124
  7. ZOPHREN [Suspect]
     Indication: PROPHYLAXIS OF NAUSEA AND VOMITING
     Route: 042
     Dates: start: 20130124, end: 20130124
  8. SUFENTANIL [Suspect]
     Indication: GENERAL ANAESTHESIA
     Route: 042
     Dates: start: 20130124, end: 20130124
  9. CONTRAMAL [Suspect]
     Indication: PAIN
     Route: 042
     Dates: start: 20130124, end: 20130124

REACTIONS (2)
  - Generalised erythema [Recovered/Resolved]
  - Hypersensitivity [Recovered/Resolved]
